FAERS Safety Report 8471262-9 (Version None)
Quarter: 2012Q2

REPORT INFORMATION
  Report Type: 
  Country: None (occurrence: None)
  Receive Date: 20120323
  Receipt Date: 20111216
  Transmission Date: 20120825
  Serious: Yes (Other)
  Sender: FDA-Public Use
  Company Number: 163-21880-11110749

PATIENT
  Age: 87 Year
  Sex: Female

DRUGS (17)
  1. BUSPAR [Concomitant]
  2. CALCIUM CARBONATE [Concomitant]
  3. ROPINIROLE [Concomitant]
  4. FAMOTIDINE [Concomitant]
  5. TRAMADOL HCL [Concomitant]
  6. TRAZODONE HCL [Concomitant]
  7. ASPIRIN [Concomitant]
  8. ENABLEX [Concomitant]
  9. OMEPRAZOLE [Concomitant]
  10. LEVOTHYROXINE SODIUM [Concomitant]
  11. VITAMIN D [Concomitant]
  12. REVLIMID [Suspect]
     Indication: MYELODYSPLASTIC SYNDROME
     Dosage: 10 MG, QD X 21 DAYS, PO
     Route: 048
     Dates: start: 20110801, end: 20111101
  13. VICODIN [Concomitant]
  14. HYDROCHLOROTHIAZIDE [Concomitant]
  15. IBUPROFEN [Concomitant]
  16. GABAPENTIN [Concomitant]
  17. XALATAN [Concomitant]

REACTIONS (3)
  - ANAEMIA [None]
  - NEUTROPENIA [None]
  - THROMBOCYTOPENIA [None]
